FAERS Safety Report 11749725 (Version 1)
Quarter: 2015Q4

REPORT INFORMATION
  Report Type: Spontaneous
  Country: None (occurrence: None)
  Receive Date: 20151117
  Receipt Date: 20151117
  Transmission Date: 20160304
  Serious: No
  Sender: FDA-Public Use
  Company Number: None

PATIENT
  Age: 41 Year

DRUGS (1)
  1. CIPRO [Suspect]
     Active Substance: CIPROFLOXACIN HYDROCHLORIDE
     Indication: URINARY TRACT INFECTION
     Dosage: 1 PILL
     Route: 048

REACTIONS (7)
  - Arthralgia [None]
  - Tendon pain [None]
  - Pain [None]
  - Anxiety [None]
  - Activities of daily living impaired [None]
  - Headache [None]
  - Gait disturbance [None]

NARRATIVE: CASE EVENT DATE: 20151101
